FAERS Safety Report 9571875 (Version 1)
Quarter: 2013Q4

REPORT INFORMATION
  Report Type: Report from Study
  Country: US (occurrence: US)
  Receive Date: 20131001
  Receipt Date: 20131001
  Transmission Date: 20140711
  Serious: No
  Sender: FDA-Public Use
  Company Number: US-ABBVIE-12P-163-1011173-00

PATIENT
  Age: 51 Year
  Sex: Female

DRUGS (1)
  1. KALETRA TABLETS 100/25 [Suspect]
     Indication: HIV INFECTION
     Dates: start: 2007

REACTIONS (2)
  - Inappropriate schedule of drug administration [Unknown]
  - Incorrect dose administered [Unknown]
